FAERS Safety Report 11445576 (Version 3)
Quarter: 2015Q4

REPORT INFORMATION
  Report Type: Spontaneous
  Country: US (occurrence: US)
  Receive Date: 20150902
  Receipt Date: 20151112
  Transmission Date: 20160304
  Serious: Yes (Other)
  Sender: FDA-Public Use
  Company Number: US-PFIZER INC-2015290033

PATIENT
  Age: 49 Year
  Sex: Female
  Weight: 96 kg

DRUGS (6)
  1. METOPROLOL [Concomitant]
     Active Substance: METOPROLOL
     Indication: PALPITATIONS
     Dosage: 0.25 MG, 2X/DAY
     Dates: start: 2000
  2. LIPITOR [Suspect]
     Active Substance: ATORVASTATIN CALCIUM
     Dosage: 20 MG, DAILY (PER DAY)
     Route: 048
     Dates: start: 199901
  3. LISINOPRIL. [Concomitant]
     Active Substance: LISINOPRIL
     Indication: HYPERTENSION
     Dosage: 0.20 MG, 2X/DAY
     Dates: start: 1998
  4. CARDURA [Concomitant]
     Active Substance: DOXAZOSIN MESYLATE
     Indication: HYPERTENSION
     Dosage: 0.40 MG, 1X/DAY
     Dates: start: 1998
  5. LIPITOR [Suspect]
     Active Substance: ATORVASTATIN CALCIUM
     Indication: BLOOD CHOLESTEROL INCREASED
     Dosage: UNK, AS DIRECTED
     Route: 048
     Dates: start: 1998, end: 201503
  6. LIPITOR [Suspect]
     Active Substance: ATORVASTATIN CALCIUM
     Dosage: 10 MG, DAILY (PER DAY)
     Route: 048
     Dates: end: 201503

REACTIONS (4)
  - Arthritis [Not Recovered/Not Resolved]
  - Type 2 diabetes mellitus [Unknown]
  - Cataract [Unknown]
  - Neuropathy peripheral [Not Recovered/Not Resolved]

NARRATIVE: CASE EVENT DATE: 2001
